FAERS Safety Report 6503511-8 (Version None)
Quarter: 2009Q4

REPORT INFORMATION
  Report Type: 
  Country: None (occurrence: None)
  Receive Date: 20091217
  Receipt Date: 20091209
  Transmission Date: 20100525
  Serious: Yes (Death, Hospitalization)
  Sender: FDA-Public Use
  Company Number: US-ELI_LILLY_AND_COMPANY-US200912002424

PATIENT
  Age: 61 Year
  Sex: Male

DRUGS (2)
  1. EFFIENT [Suspect]
     Indication: CORONARY ARTERY DISEASE
     Dosage: 10 MG, DAILY (1/D)
     Dates: start: 20090101
  2. COCAINE [Concomitant]

REACTIONS (3)
  - CHEST PAIN [None]
  - DEATH [None]
  - DYSPNOEA [None]
